FAERS Safety Report 15857295 (Version 1)
Quarter: 2019Q1

REPORT INFORMATION
  Report Type: Other
  Country: US (occurrence: US)
  Receive Date: 20190123
  Receipt Date: 20190123
  Transmission Date: 20190417
  Serious: Yes (Death)
  Sender: FDA-Public Use
  Company Number: US-OSMOTICA_PHARMACEUTICAL_US_LLC-POI0573201900036

PATIENT
  Age: 11 Month
  Sex: Female

DRUGS (1)
  1. NIFEDIPINE EXTENDED-RELEASE TABLETS [Suspect]
     Active Substance: NIFEDIPINE
     Indication: PRODUCT USED FOR UNKNOWN INDICATION
     Dates: end: 2017

REACTIONS (4)
  - Bradycardia [Fatal]
  - Cardiac arrest [Fatal]
  - Atrial conduction time prolongation [Fatal]
  - Toxicity to various agents [Fatal]

NARRATIVE: CASE EVENT DATE: 2017
